FAERS Safety Report 4924800-4 (Version None)
Quarter: 2006Q1

REPORT INFORMATION
  Report Type: 
  Country: None (occurrence: None)
  Receive Date: 20060227
  Receipt Date: 20050217
  Transmission Date: 20060701
  Serious: Yes (Hospitalization, Other)
  Sender: FDA-Public Use
  Company Number: US-MERCK-0502USA02659

PATIENT
  Age: 83 Year
  Sex: Female
  Weight: 52 kg

DRUGS (3)
  1. VIOXX [Suspect]
     Indication: ARTHRITIS
     Route: 048
     Dates: start: 19991208, end: 20001001
  2. TYLENOL (CAPLET) [Concomitant]
     Route: 065
  3. VIOXX [Suspect]
     Route: 065
     Dates: start: 19991208, end: 20001001

REACTIONS (2)
  - CARDIAC FAILURE CONGESTIVE [None]
  - CEREBROVASCULAR ACCIDENT [None]
